FAERS Safety Report 4424733-6 (Version None)
Quarter: 2004Q3

REPORT INFORMATION
  Report Type: 
  Country: None (occurrence: None)
  Receive Date: 20040719
  Receipt Date: 20030721
  Transmission Date: 20050211
  Serious: Yes (Hospitalization)
  Sender: FDA-Public Use
  Company Number: 176211

PATIENT
  Age: 59 Year
  Sex: Male

DRUGS (8)
  1. AVONEX [Suspect]
     Indication: MULTIPLE SCLEROSIS
     Dosage: 30 MCG QW IM
     Route: 030
     Dates: start: 19980101
  2. AMANTADINE HCL [Concomitant]
  3. LIPITOR [Concomitant]
  4. LESCOL ^SANDOZ^ [Concomitant]
  5. METOPROLOL [Concomitant]
  6. NITROGLYCERIN ^DAK^ [Concomitant]
  7. LEVOXYL [Concomitant]
  8. AMITRIPTYLINE HCL [Concomitant]

REACTIONS (2)
  - BACK PAIN [None]
  - MULTIPLE SCLEROSIS RELAPSE [None]
